FAERS Safety Report 23271277 (Version 2)
Quarter: 2024Q1

REPORT INFORMATION
  Report Type: Spontaneous
  Country: HR (occurrence: HR)
  Receive Date: 20231207
  Receipt Date: 20240308
  Transmission Date: 20240410
  Serious: Yes (Death, Hospitalization, Other)
  Sender: FDA-Public Use
  Company Number: HR-ASTELLAS-2023US036036

PATIENT
  Age: 63 Year
  Sex: Male

DRUGS (4)
  1. GILTERITINIB [Suspect]
     Active Substance: GILTERITINIB
     Indication: Acute myeloid leukaemia
     Dosage: 120 MG, ONCE DAILY. (RECEIVED TOTAL OF 4 CYCLES)
     Route: 065
  2. GILTERITINIB [Suspect]
     Active Substance: GILTERITINIB
     Indication: FLT3 gene mutation
  3. SORAFENIB [Concomitant]
     Active Substance: SORAFENIB
     Indication: Product used for unknown indication
     Dosage: UNK UNK, UNKNOWN FREQ.
     Route: 065
     Dates: start: 202309
  4. LETERMOVIR [Concomitant]
     Active Substance: LETERMOVIR
     Indication: Cytomegalovirus infection reactivation
     Dosage: UNK UNK, UNKNOWN FREQ.
     Route: 065

REACTIONS (8)
  - Sepsis [Fatal]
  - Multiple organ dysfunction syndrome [Fatal]
  - Pneumonia [Unknown]
  - Pneumomediastinum [Unknown]
  - Interstitial lung disease [Unknown]
  - Cytomegalovirus infection reactivation [Recovering/Resolving]
  - Respiratory failure [Unknown]
  - Transaminases increased [Unknown]

NARRATIVE: CASE EVENT DATE: 20231001
